FAERS Safety Report 18018385 (Version 1)
Quarter: 2020Q3

REPORT INFORMATION
  Report Type: Spontaneous
  Country: US (occurrence: US)
  Receive Date: 20200713
  Receipt Date: 20200713
  Transmission Date: 20201103
  Serious: Yes (Hospitalization)
  Sender: FDA-Public Use
  Company Number: None

PATIENT
  Age: 62 Year
  Sex: Female

DRUGS (15)
  1. ESOMEPRAZOLE. [Concomitant]
     Active Substance: ESOMEPRAZOLE MAGNESIUM
  2. GABAPENTIN. [Concomitant]
     Active Substance: GABAPENTIN
  3. QUETIAPINE. [Concomitant]
     Active Substance: QUETIAPINE
  4. TYKERB [Concomitant]
     Active Substance: LAPATINIB DITOSYLATE
  5. DULOXETINE. [Concomitant]
     Active Substance: DULOXETINE
  6. ENALAPRIL [Concomitant]
     Active Substance: ENALAPRIL
  7. CARVEDILOL. [Concomitant]
     Active Substance: CARVEDILOL
  8. TYLENOL [Concomitant]
     Active Substance: ACETAMINOPHEN
  9. VITAMIN D3 [Concomitant]
     Active Substance: CHOLECALCIFEROL
  10. LEVEMIR [Concomitant]
     Active Substance: INSULIN DETEMIR
  11. CAPECITABINE 500MG TAB [Suspect]
     Active Substance: CAPECITABINE
     Indication: BREAST CANCER
     Dosage: OTHER FREQUENCY:QAM?QPM; 7 D IB ? 7 D OFF?
     Route: 048
     Dates: start: 20190820
  12. ALPRAZOLAM. [Concomitant]
     Active Substance: ALPRAZOLAM
  13. FUROSEMIDE. [Concomitant]
     Active Substance: FUROSEMIDE
  14. KLOR?CON M20 [Concomitant]
     Active Substance: POTASSIUM CHLORIDE
  15. SPIRONOLACT [Concomitant]
     Active Substance: SPIRONOLACTONE

REACTIONS (1)
  - Cerebrovascular accident [None]

NARRATIVE: CASE EVENT DATE: 20200625
